FAERS Safety Report 15749937 (Version 1)
Quarter: 2018Q4

REPORT INFORMATION
  Report Type: Spontaneous
  Country: JP (occurrence: JP)
  Receive Date: 20181221
  Receipt Date: 20181221
  Transmission Date: 20190205
  Serious: Yes (Hospitalization)
  Sender: FDA-Public Use
  Company Number: JP-REGENERON PHARMACEUTICALS, INC.-2018-47020

PATIENT

DRUGS (10)
  1. EYLEA [Suspect]
     Active Substance: AFLIBERCEPT
     Dosage: 2 MG, ONCE
     Route: 031
     Dates: start: 20180904, end: 20180904
  2. EYLEA [Suspect]
     Active Substance: AFLIBERCEPT
     Dosage: 2 MG, ONCE
     Route: 031
     Dates: start: 20181002, end: 20181002
  3. LEVOFLOXACIN. [Concomitant]
     Active Substance: LEVOFLOXACIN
     Dosage: 1 DF, QID
     Route: 047
     Dates: start: 20180904, end: 20180907
  4. LEVOFLOXACIN. [Concomitant]
     Active Substance: LEVOFLOXACIN
     Dosage: 1 DF, QID
     Route: 047
     Dates: start: 20180929, end: 20181005
  5. LEVOFLOXACIN. [Concomitant]
     Active Substance: LEVOFLOXACIN
     Dosage: 1 DF, QID
     Route: 047
     Dates: start: 20181103, end: 20181109
  6. EYLEA [Suspect]
     Active Substance: AFLIBERCEPT
     Dosage: 2 MG, ONCE
     Route: 031
     Dates: start: 20181106, end: 20181106
  7. LEVOFLOXACIN. [Concomitant]
     Active Substance: LEVOFLOXACIN
     Indication: PRODUCT USED FOR UNKNOWN INDICATION
     Dosage: 1 DF, QID
     Route: 047
     Dates: start: 20180625, end: 20180701
  8. EYLEA [Suspect]
     Active Substance: AFLIBERCEPT
     Indication: NEOVASCULAR AGE-RELATED MACULAR DEGENERATION
     Dosage: 2 MG, ONCE, LEFT EYE
     Route: 031
     Dates: start: 20180628, end: 20180628
  9. LEVOFLOXACIN. [Concomitant]
     Active Substance: LEVOFLOXACIN
     Dosage: 1 DF, QID
     Route: 047
     Dates: start: 20180714, end: 20180720
  10. EYLEA [Suspect]
     Active Substance: AFLIBERCEPT
     Indication: POLYPOIDAL CHOROIDAL VASCULOPATHY
     Dosage: 2 MG, ONCE
     Route: 031
     Dates: start: 20180717, end: 20180717

REACTIONS (3)
  - Cerebral infarction [Recovering/Resolving]
  - Inappropriate schedule of product administration [Unknown]
  - Cardiac failure [Recovering/Resolving]

NARRATIVE: CASE EVENT DATE: 20181109
